FAERS Safety Report 18338606 (Version 6)
Quarter: 2021Q4

REPORT INFORMATION
  Report Type: Spontaneous
  Country: DE (occurrence: DE)
  Receive Date: 20201002
  Receipt Date: 20211011
  Transmission Date: 20220303
  Serious: Yes (Hospitalization, Other)
  Sender: FDA-Public Use
  Company Number: DE-002147023-NVSC2020DE191265

PATIENT
  Sex: Female

DRUGS (63)
  1. VALSARTAN [Suspect]
     Active Substance: VALSARTAN
     Indication: Hypertension
     Dosage: 80 MG
     Route: 065
     Dates: start: 20140612
  2. VALSARTAN [Suspect]
     Active Substance: VALSARTAN
     Dosage: 80 MG
     Route: 065
     Dates: start: 20130830
  3. VALSARTAN [Suspect]
     Active Substance: VALSARTAN
     Dosage: 80 MG
     Route: 065
     Dates: start: 20160222
  4. VALSARTAN [Suspect]
     Active Substance: VALSARTAN
     Dosage: 80 MG
     Route: 065
     Dates: start: 20160825
  5. VALSARTAN [Suspect]
     Active Substance: VALSARTAN
     Dosage: 80 MG
     Route: 065
     Dates: start: 20121105
  6. VALSARTAN [Suspect]
     Active Substance: VALSARTAN
     Dosage: 80 MG
     Route: 065
     Dates: start: 20140220
  7. VALSARTAN [Suspect]
     Active Substance: VALSARTAN
     Dosage: 80 MG
     Route: 065
     Dates: start: 20171115
  8. VALSARTAN [Suspect]
     Active Substance: VALSARTAN
     Dosage: 80 MG
     Route: 065
     Dates: start: 20151103
  9. VALSARTAN [Suspect]
     Active Substance: VALSARTAN
     Dosage: 80 MG
     Route: 065
     Dates: start: 20160404
  10. VALSARTAN [Suspect]
     Active Substance: VALSARTAN
     Dosage: 80 MG
     Route: 065
     Dates: start: 20130321
  11. VALSARTAN [Suspect]
     Active Substance: VALSARTAN
     Dosage: 80 MG
     Route: 065
     Dates: start: 20120730
  12. VALSARTAN [Suspect]
     Active Substance: VALSARTAN
     Dosage: 80 MG
     Route: 065
     Dates: start: 20160526
  13. VALSARTAN [Suspect]
     Active Substance: VALSARTAN
     Dosage: 80 MG
     Route: 065
     Dates: start: 20130330
  14. VALSARTAN [Suspect]
     Active Substance: VALSARTAN
     Dosage: UNK
     Route: 065
  15. VALSARTAN [Suspect]
     Active Substance: VALSARTAN
     Dosage: 80 MG
     Route: 065
     Dates: start: 20150723
  16. VALSARTAN [Suspect]
     Active Substance: VALSARTAN
     Dosage: 80 MG
     Route: 065
     Dates: start: 20160104
  17. VALSARTAN [Suspect]
     Active Substance: VALSARTAN
     Dosage: UNK
     Route: 065
  18. VALSARTAN [Suspect]
     Active Substance: VALSARTAN
     Dosage: 80 MG
     Route: 065
     Dates: start: 20150105
  19. VALSARTAN [Suspect]
     Active Substance: VALSARTAN
     Dosage: 80 MG
     Route: 065
     Dates: start: 20131029
  20. VALSARTAN [Suspect]
     Active Substance: VALSARTAN
     Dosage: 80 MG
     Route: 065
     Dates: start: 20150416
  21. VALSARTAN [Suspect]
     Active Substance: VALSARTAN
     Dosage: 80 MG
     Route: 065
     Dates: start: 20160630
  22. VALSARTAN [Suspect]
     Active Substance: VALSARTAN
     Dosage: 80 MG
     Route: 065
     Dates: start: 20120618
  23. VALSARTAN [Suspect]
     Active Substance: VALSARTAN
     Dosage: 80 MG
     Route: 065
     Dates: start: 20140925
  24. VALSARTAN [Suspect]
     Active Substance: VALSARTAN
     Dosage: 80 MG / 12.5 MG, BID
     Route: 065
     Dates: start: 20120423, end: 201409
  25. VALSARTAN [Suspect]
     Active Substance: VALSARTAN
     Dosage: 80 MG
     Route: 065
     Dates: start: 20130221
  26. VALSARTAN [Suspect]
     Active Substance: VALSARTAN
     Dosage: 2 DOSAGE FORM, QD(1X80MG(160MG DAILY)
     Route: 065
     Dates: start: 201202, end: 201711
  27. VALSARTAN [Suspect]
     Active Substance: VALSARTAN
     Dosage: UNK
     Route: 065
     Dates: start: 201801
  28. VALSARTAN [Suspect]
     Active Substance: VALSARTAN
     Dosage: UNK
     Route: 065
     Dates: start: 20161021
  29. VALSARTAN [Suspect]
     Active Substance: VALSARTAN
     Dosage: 80 MG
     Route: 065
     Dates: start: 20140925
  30. HYDROCHLOROTHIAZIDE\VALSARTAN [Suspect]
     Active Substance: HYDROCHLOROTHIAZIDE\VALSARTAN
     Indication: Hypertension
     Dosage: 80 MG / 12.5 MG
     Route: 065
     Dates: start: 20170801
  31. HYDROCHLOROTHIAZIDE\VALSARTAN [Suspect]
     Active Substance: HYDROCHLOROTHIAZIDE\VALSARTAN
     Dosage: 80 MG / 12.5 MG
     Route: 065
     Dates: start: 20160531
  32. HYDROCHLOROTHIAZIDE\VALSARTAN [Suspect]
     Active Substance: HYDROCHLOROTHIAZIDE\VALSARTAN
     Dosage: 80 MG / 12.5 MG
     Route: 065
     Dates: start: 20140925, end: 201501
  33. HYDROCHLOROTHIAZIDE\VALSARTAN [Suspect]
     Active Substance: HYDROCHLOROTHIAZIDE\VALSARTAN
     Dosage: 80 MG / 12.5 MG
     Route: 065
     Dates: start: 20160411
  34. HYDROCHLOROTHIAZIDE\VALSARTAN [Suspect]
     Active Substance: HYDROCHLOROTHIAZIDE\VALSARTAN
     Dosage: 80 MG / 12.5 MG
     Route: 065
     Dates: start: 20160905
  35. HYDROCHLOROTHIAZIDE\VALSARTAN [Suspect]
     Active Substance: HYDROCHLOROTHIAZIDE\VALSARTAN
     Dosage: 80 MG / 12.5 MG
     Route: 065
     Dates: start: 20171116
  36. HYDROCHLOROTHIAZIDE\VALSARTAN [Suspect]
     Active Substance: HYDROCHLOROTHIAZIDE\VALSARTAN
     Dosage: 80 MG / 12.5 MG
     Route: 065
     Dates: start: 20160223
  37. HYDROCHLOROTHIAZIDE\VALSARTAN [Suspect]
     Active Substance: HYDROCHLOROTHIAZIDE\VALSARTAN
     Dosage: 80 MG / 12.5 MG
     Route: 065
     Dates: start: 20170516
  38. HYDROCHLOROTHIAZIDE\VALSARTAN [Suspect]
     Active Substance: HYDROCHLOROTHIAZIDE\VALSARTAN
     Dosage: 80 MG / 12.5 MG
     Route: 065
     Dates: start: 20160701
  39. HYDROCHLOROTHIAZIDE\VALSARTAN [Suspect]
     Active Substance: HYDROCHLOROTHIAZIDE\VALSARTAN
     Dosage: 80 MG / 12.5 MG, BID
     Route: 065
     Dates: start: 201504, end: 20180215
  40. HYDROCHLOROTHIAZIDE\VALSARTAN [Suspect]
     Active Substance: HYDROCHLOROTHIAZIDE\VALSARTAN
     Dosage: 80 MG / 12.5 MG
     Route: 065
     Dates: start: 20170131
  41. HYDROCHLOROTHIAZIDE\VALSARTAN [Suspect]
     Active Substance: HYDROCHLOROTHIAZIDE\VALSARTAN
     Dosage: 80 MG / 12.5 MG, BID
     Route: 065
     Dates: start: 201409, end: 201501
  42. HYDROCHLOROTHIAZIDE\VALSARTAN [Suspect]
     Active Substance: HYDROCHLOROTHIAZIDE\VALSARTAN
     Dosage: 80 MG / 12.5 MG
     Route: 065
     Dates: start: 20150728
  43. HYDROCHLOROTHIAZIDE\VALSARTAN [Suspect]
     Active Substance: HYDROCHLOROTHIAZIDE\VALSARTAN
     Dosage: 80 MG / 12.5 MG
     Route: 065
     Dates: start: 20161022
  44. HYDROCHLOROTHIAZIDE\VALSARTAN [Suspect]
     Active Substance: HYDROCHLOROTHIAZIDE\VALSARTAN
     Dosage: 80 MG / 12.5 MG
     Route: 065
     Dates: start: 20170323
  45. HYDROCHLOROTHIAZIDE\VALSARTAN [Suspect]
     Active Substance: HYDROCHLOROTHIAZIDE\VALSARTAN
     Dosage: 80 MG / 12.5 MG
     Route: 065
     Dates: start: 20150423
  46. HYDROCHLOROTHIAZIDE\VALSARTAN [Suspect]
     Active Substance: HYDROCHLOROTHIAZIDE\VALSARTAN
     Dosage: 80 MG / 12.5 MG
     Route: 065
     Dates: start: 20151103
  47. HYDROCHLOROTHIAZIDE\VALSARTAN [Suspect]
     Active Substance: HYDROCHLOROTHIAZIDE\VALSARTAN
     Dosage: 80 MG / 12.5 MG
     Route: 065
     Dates: start: 20160104
  48. HYDROCHLOROTHIAZIDE\VALSARTAN [Suspect]
     Active Substance: HYDROCHLOROTHIAZIDE\VALSARTAN
     Dosage: 80 MG / 12.5 MG
     Route: 065
     Dates: start: 20161212
  49. HYDROCHLOROTHIAZIDE\VALSARTAN [Suspect]
     Active Substance: HYDROCHLOROTHIAZIDE\VALSARTAN
     Dosage: 80/12.5 MG, QD
     Route: 065
  50. HYDROCHLOROTHIAZIDE\VALSARTAN [Suspect]
     Active Substance: HYDROCHLOROTHIAZIDE\VALSARTAN
     Dosage: UNK
  51. ACETAMINOPHEN [Concomitant]
     Active Substance: ACETAMINOPHEN
     Indication: Product used for unknown indication
     Dosage: UNK
     Route: 065
  52. POLIOMYELITIS VACCINE NOS [Concomitant]
     Active Substance: POLIOMYELITIS VACCINE
     Indication: Product used for unknown indication
     Dosage: UNK
     Route: 065
     Dates: start: 20130930
  53. LUMIGAN [Concomitant]
     Active Substance: BIMATOPROST
     Indication: Product used for unknown indication
     Dosage: UNK UNK, QD (EVENING)
     Route: 065
  54. INFLUENZA VIRUS VACCINE [Concomitant]
     Active Substance: INFLUENZA VIRUS VACCINE
     Indication: Product used for unknown indication
     Dosage: UNK
     Dates: start: 20141016
  55. INFLUENZA VIRUS VACCINE [Concomitant]
     Active Substance: INFLUENZA VIRUS VACCINE
     Dosage: UNK
     Route: 065
     Dates: start: 20151103
  56. INFLUENZA VIRUS VACCINE [Concomitant]
     Active Substance: INFLUENZA VIRUS VACCINE
     Dosage: UNK
     Route: 065
     Dates: start: 20131029
  57. INFLUENZA VIRUS VACCINE [Concomitant]
     Active Substance: INFLUENZA VIRUS VACCINE
     Dosage: UNK
     Route: 065
     Dates: start: 20120928
  58. METOPROLOL TARTRATE [Concomitant]
     Active Substance: METOPROLOL TARTRATE
     Indication: Product used for unknown indication
     Dosage: 47.5 UNK, BID (MORNING AND EVENING)
     Route: 065
  59. DROSPIRENONE\ETHINYL ESTRADIOL [Concomitant]
     Active Substance: DROSPIRENONE\ETHINYL ESTRADIOL
     Indication: Menopause
     Dosage: UNK
     Route: 065
     Dates: start: 201506
  60. BLACK COHOSH [Concomitant]
     Active Substance: BLACK COHOSH
     Indication: Menopause
     Dosage: 1 DOSAGE FORM, QD (1 DF, QD (IN THE MORNING))
     Route: 065
  61. IBUPROFEN [Concomitant]
     Active Substance: IBUPROFEN
     Indication: Product used for unknown indication
     Dosage: 1800 DOSAGE FORM, QD (600 DF, TID)
     Route: 065
  62. CANDESARTAN [Concomitant]
     Active Substance: CANDESARTAN
     Indication: Product used for unknown indication
     Dosage: UNK, QD
     Route: 065
  63. PANTOPRAZOLE SODIUM [Concomitant]
     Active Substance: PANTOPRAZOLE SODIUM
     Indication: Product used for unknown indication
     Dosage: 20 DOSAGE FORM, QD (20 DF, QD )
     Route: 065

REACTIONS (42)
  - Osteoarthritis [Unknown]
  - Groin pain [Unknown]
  - Hip deformity [Unknown]
  - Haematoma [Recovering/Resolving]
  - Wound secretion [Recovering/Resolving]
  - Synovitis [Unknown]
  - Blood loss anaemia [Unknown]
  - Gait disturbance [Unknown]
  - Swelling [Recovering/Resolving]
  - Haemorrhoids [Unknown]
  - Glaucoma [Unknown]
  - Hypothyroidism [Unknown]
  - Autoimmune thyroiditis [Unknown]
  - Dry mouth [Not Recovered/Not Resolved]
  - Quality of life decreased [Unknown]
  - Seasonal allergy [Unknown]
  - Emotional distress [Unknown]
  - Restlessness [Not Recovered/Not Resolved]
  - Palpitations [Unknown]
  - Rhinitis allergic [Unknown]
  - Obesity [Unknown]
  - Nasopharyngitis [Unknown]
  - Rheumatic disorder [Unknown]
  - Pyrexia [Unknown]
  - Haemorrhoids [Unknown]
  - Iron metabolism disorder [Unknown]
  - Anal pruritus [Unknown]
  - Cervicitis [Unknown]
  - Uterine polyp [Unknown]
  - Iron deficiency [Unknown]
  - Hyperplasia [Unknown]
  - Obesity [Unknown]
  - Cervical polyp [Unknown]
  - Infection [Unknown]
  - Headache [Not Recovered/Not Resolved]
  - Nausea [Not Recovered/Not Resolved]
  - Fatigue [Unknown]
  - Blood pressure abnormal [Unknown]
  - Disturbance in attention [Unknown]
  - Insomnia [Unknown]
  - Nervousness [Unknown]
  - Fear of disease [Unknown]

NARRATIVE: CASE EVENT DATE: 20120101
